FAERS Safety Report 17907365 (Version 1)
Quarter: 2020Q2

REPORT INFORMATION
  Report Type: Spontaneous
  Country: DE (occurrence: DE)
  Receive Date: 20200617
  Receipt Date: 20200617
  Transmission Date: 20200714
  Serious: Yes (Hospitalization)
  Sender: FDA-Public Use
  Company Number: DE-PFIZER INC-2020233770

PATIENT
  Age: 80 Year
  Sex: Female
  Weight: 68 kg

DRUGS (10)
  1. BUPRENORPHINE. [Suspect]
     Active Substance: BUPRENORPHINE
     Dosage: 10 YG / H, CHANGE EVERY 7 DAYS
  2. REVLIMID [Suspect]
     Active Substance: LENALIDOMIDE
     Dosage: 10 MG/ML, DAILY (0-0-1-0)
  3. METHOCARBAMOL. [Suspect]
     Active Substance: METHOCARBAMOL
     Dosage: 750 MG, 3X/DAY (2-2-2-0)
  4. RAMIPRIL. [Concomitant]
     Active Substance: RAMIPRIL
     Dosage: 5 UNKNOWN UNIT , DAILY (1-0-0-0 )
  5. HYDROCHLOROTHIAZID [Concomitant]
     Active Substance: HYDROCHLOROTHIAZIDE
     Dosage: 12.5 MG, DAILY (1-0-0-0)
  6. MOVICOL [Concomitant]
     Active Substance: POLYETHYLENE GLYCOL 3350\POTASSIUM CHLORIDE\SODIUM BICARBONATE\SODIUM CHLORIDE
     Dosage: UNK, DAILY (1-0-0-0)
  7. PREGABALIN. [Suspect]
     Active Substance: PREGABALIN
     Dosage: 25 MG, 3X/DAY (1-1-1-0)
  8. METAMIZOL [Suspect]
     Active Substance: METAMIZOLE SODIUM
     Dosage: DROP (30-30-30-30)
  9. ACICLOVIR [Concomitant]
     Active Substance: ACYCLOVIR
     Dosage: 400 MG, 2X/DAY(1-0-1-0)
  10. AMLODIPINE [Concomitant]
     Active Substance: AMLODIPINE BESYLATE
     Dosage: 5 MG, DAILY (1-0-0-0 )

REACTIONS (2)
  - Fall [Unknown]
  - Dizziness [Unknown]
